FAERS Safety Report 8525815 (Version 5)
Quarter: 2014Q1

REPORT INFORMATION
  Report Type: Report from Study
  Country: US (occurrence: US)
  Receive Date: 20120423
  Receipt Date: 20140114
  Transmission Date: 20141002
  Serious: Yes (Other)
  Sender: FDA-Public Use
  Company Number: US-ROCHE-1058754

PATIENT
  Age: 44 Year
  Sex: Female
  Weight: 61 kg

DRUGS (9)
  1. VISMODEGIB [Suspect]
     Indication: CHONDROSARCOMA
     Dosage: INTERRUPTED, TOTAL DOSE RECEIVED 1200 MG.
     Route: 048
     Dates: start: 20120220, end: 20120326
  2. SKENAN [Suspect]
     Indication: PRODUCT USED FOR UNKNOWN INDICATION
     Route: 065
  3. ACTISKENAN [Suspect]
     Indication: PRODUCT USED FOR UNKNOWN INDICATION
     Route: 065
  4. DUPHALAC [Suspect]
     Indication: PRODUCT USED FOR UNKNOWN INDICATION
     Route: 065
  5. LYRICA [Suspect]
     Indication: PRODUCT USED FOR UNKNOWN INDICATION
     Route: 065
  6. ACUPAN [Suspect]
     Indication: PRODUCT USED FOR UNKNOWN INDICATION
     Route: 065
  7. PARACETAMOL [Suspect]
     Indication: PRODUCT USED FOR UNKNOWN INDICATION
     Route: 065
  8. IXPRIM [Concomitant]
  9. PRIMPERAN (METOCLOPRAMIDE HYDROCHLORIDE) [Concomitant]

REACTIONS (3)
  - Alanine aminotransferase increased [Not Recovered/Not Resolved]
  - Gamma-glutamyltransferase increased [Not Recovered/Not Resolved]
  - Aspartate aminotransferase increased [Not Recovered/Not Resolved]
